FAERS Safety Report 20574219 (Version 3)
Quarter: 2022Q2

REPORT INFORMATION
  Report Type: Report from Study
  Country: IT (occurrence: IT)
  Receive Date: 20220309
  Receipt Date: 20220602
  Transmission Date: 20220721
  Serious: Yes (Other)
  Sender: FDA-Public Use
  Company Number: IT-PFM-2022-01919

PATIENT
  Age: 76 Year
  Sex: Female

DRUGS (3)
  1. ENCORAFENIB [Suspect]
     Active Substance: ENCORAFENIB
     Indication: Colon cancer metastatic
     Dosage: 300 MG, QD (1/DAY)
     Route: 048
     Dates: start: 202105, end: 20210623
  2. ENCORAFENIB [Suspect]
     Active Substance: ENCORAFENIB
     Dosage: 225 MG, QD (1/DAY)
     Route: 048
  3. CETUXIMAB [Suspect]
     Active Substance: CETUXIMAB
     Indication: Colon cancer metastatic
     Dosage: UNK
     Route: 065

REACTIONS (1)
  - Skin toxicity [Recovering/Resolving]
